FAERS Safety Report 19861309 (Version 1)
Quarter: 2021Q3

REPORT INFORMATION
  Report Type: Spontaneous
  Country: US (occurrence: US)
  Receive Date: 20210920
  Receipt Date: 20210920
  Transmission Date: 20211014
  Serious: Yes (Hospitalization)
  Sender: FDA-Public Use
  Company Number: None

PATIENT
  Age: 69 Year
  Sex: Female

DRUGS (7)
  1. CEFDINIR. [Concomitant]
     Active Substance: CEFDINIR
  2. BACLOFEN. [Concomitant]
     Active Substance: BACLOFEN
  3. CIPROFLOXACN [Concomitant]
     Active Substance: CIPROFLOXACIN
  4. FORTEO [Suspect]
     Active Substance: TERIPARATIDE
     Indication: MULTIPLE SCLEROSIS
     Route: 048
     Dates: start: 20200626
  5. LEVETIRACETA [Concomitant]
     Active Substance: LEVETIRACETAM
  6. VITAMIN D3 [Concomitant]
     Active Substance: CHOLECALCIFEROL
  7. VITAMIN B12 [Concomitant]
     Active Substance: CYANOCOBALAMIN

REACTIONS (1)
  - Infection [None]

NARRATIVE: CASE EVENT DATE: 20210919
